FAERS Safety Report 5776124-3 (Version None)
Quarter: 2008Q2

REPORT INFORMATION
  Report Type: 
  Country: None (occurrence: None)
  Receive Date: 20080617
  Receipt Date: 20080609
  Transmission Date: 20081010
  Serious: Yes (Hospitalization)
  Sender: FDA-Public Use
  Company Number: DE-AMGEN-US260092

PATIENT
  Sex: Male
  Weight: 99 kg

DRUGS (10)
  1. ENBREL [Suspect]
     Indication: RHEUMATOID ARTHRITIS
     Route: 058
     Dates: start: 20070110, end: 20070601
  2. INDOMETHACIN [Concomitant]
  3. PREDNISOLONE [Concomitant]
     Indication: RHEUMATOID ARTHRITIS
     Route: 048
     Dates: start: 20070201
  4. PREDNISOLONE [Concomitant]
     Route: 048
     Dates: start: 20050501, end: 20070101
  5. PREDNISOLONE [Concomitant]
     Route: 048
     Dates: start: 20070101, end: 20070201
  6. ETORICOXIB [Concomitant]
     Indication: RHEUMATOID ARTHRITIS
     Route: 048
     Dates: start: 20051201, end: 20070401
  7. METHOTREXATE [Concomitant]
     Indication: RHEUMATOID ARTHRITIS
     Route: 051
     Dates: start: 20050501, end: 20060101
  8. METHOTREXATE [Concomitant]
     Route: 051
     Dates: start: 20060301, end: 20070601
  9. METHOTREXATE [Concomitant]
     Route: 051
     Dates: start: 20070701
  10. ARAVA [Concomitant]
     Indication: RHEUMATOID ARTHRITIS
     Route: 048
     Dates: start: 20060101, end: 20070401

REACTIONS (2)
  - EMPYEMA [None]
  - PLEURAL EFFUSION [None]
